FAERS Safety Report 6613145-2 (Version None)
Quarter: 2010Q1

REPORT INFORMATION
  Report Type: 
  Country: None (occurrence: None)
  Receive Date: 20100225
  Receipt Date: 20100212
  Transmission Date: 20100710
  Serious: Yes (Death)
  Sender: FDA-Public Use
  Company Number: DSA_42630_2010

PATIENT
  Sex: Female

DRUGS (1)
  1. XENAZINE [Suspect]
     Indication: DYSTONIA
     Dosage: (12.5 MG TID ORAL)
     Route: 048
     Dates: start: 20090630

REACTIONS (1)
  - DEATH [None]
